FAERS Safety Report 24647734 (Version 2)
Quarter: 2024Q4

REPORT INFORMATION
  Report Type: Spontaneous
  Country: DZ (occurrence: DZ)
  Receive Date: 20241121
  Receipt Date: 20241224
  Transmission Date: 20250115
  Serious: Yes (Life-Threatening, Hospitalization, Other)
  Sender: PFIZER
  Company Number: DZ-PFIZER INC-202400304078

PATIENT
  Age: 66 Year
  Sex: Male
  Weight: 55 kg

DRUGS (2)
  1. CRIZOTINIB [Suspect]
     Active Substance: CRIZOTINIB
     Indication: Lung cancer metastatic
     Dosage: 250 MG, 2X/DAY
     Route: 048
     Dates: start: 20240925, end: 20241105
  2. XAMADOL [Concomitant]
     Indication: Pain
     Dosage: 2 DF, 2X/DAY

REACTIONS (1)
  - Myocarditis [Recovered/Resolved]

NARRATIVE: CASE EVENT DATE: 20241028
